FAERS Safety Report 6469723-7 (Version None)
Quarter: 2009Q4

REPORT INFORMATION
  Report Type: 
  Country: None (occurrence: None)
  Receive Date: 20091130
  Receipt Date: 20091119
  Transmission Date: 20100525
  Serious: Yes (Death, Hospitalization, Disabling, Other)
  Sender: FDA-Public Use
  Company Number: 2009008078 (2)

PATIENT
  Age: 63 Year
  Sex: Male

DRUGS (6)
  1. FENTANYL [Suspect]
     Dosage: (100 MCG,OD AS NEEDED),BU; (200 MCG),BU; (400 MCG,DAILY AS NEEDED),BU
     Route: 002
     Dates: start: 20090401, end: 20090624
  2. FENTANYL [Suspect]
     Dosage: (100 MCG,OD AS NEEDED),BU; (200 MCG),BU; (400 MCG,DAILY AS NEEDED),BU
     Route: 002
     Dates: start: 20090601
  3. PALLADONE (HYDROMORPHONE) [Concomitant]
  4. LYRICA [Concomitant]
  5. LANSOPRAZOLE [Concomitant]
  6. GALFER (FERROUS FUMARATE) [Concomitant]

REACTIONS (5)
  - DEAFNESS TRANSITORY [None]
  - DYSPHAGIA [None]
  - GENERAL PHYSICAL HEALTH DETERIORATION [None]
  - SUDDEN HEARING LOSS [None]
  - SWELLING FACE [None]
